FAERS Safety Report 6550718-X (Version None)
Quarter: 2010Q1

REPORT INFORMATION
  Report Type: 
  Country: None (occurrence: None)
  Receive Date: 20100125
  Receipt Date: 20100111
  Transmission Date: 20100710
  Serious: Yes (Disabling, Other)
  Sender: FDA-Public Use
  Company Number: PHEH2008US07584

PATIENT
  Sex: Female

DRUGS (8)
  1. ZOMETA [Suspect]
     Dosage: UNK
     Dates: end: 20070801
  2. AMOXICILLIN [Concomitant]
  3. CLINDAMYCIN [Concomitant]
  4. ALPRAZOLAM [Concomitant]
  5. VICODIN [Concomitant]
  6. CELEBREX [Concomitant]
  7. PERIDEX [Concomitant]
  8. AUGMENTIN                               /SCH/ [Concomitant]
     Dosage: 500 MG, UNK

REACTIONS (9)
  - ANHEDONIA [None]
  - ANXIETY [None]
  - BONE DISORDER [None]
  - DISABILITY [None]
  - INJURY [None]
  - ORAL DISCHARGE [None]
  - OSTEONECROSIS [None]
  - PAIN [None]
  - TOOTH EXTRACTION [None]
